FAERS Safety Report 18218939 (Version 1)
Quarter: 2020Q3

REPORT INFORMATION
  Report Type: Spontaneous
  Country: ES (occurrence: ES)
  Receive Date: 20200901
  Receipt Date: 20200901
  Transmission Date: 20201103
  Serious: Yes (Other)
  Sender: FDA-Public Use
  Company Number: NVSC2020ES240160

PATIENT
  Age: 21 Year
  Sex: Male

DRUGS (5)
  1. OCTREOTIDE. [Suspect]
     Active Substance: OCTREOTIDE
     Indication: ANAEMIA
     Dosage: 20 G, QMO
     Route: 065
     Dates: end: 201408
  2. POLIDOCANOL. [Concomitant]
     Active Substance: POLIDOCANOL
     Indication: PRODUCT USED FOR UNKNOWN INDICATION
     Dosage: UNK
     Route: 065
  3. OCTREOTIDE. [Suspect]
     Active Substance: OCTREOTIDE
  4. OCTREOTIDE. [Suspect]
     Active Substance: OCTREOTIDE
  5. FERRIC CARBOXYMALTOSE [Concomitant]
     Active Substance: FERRIC CARBOXYMALTOSE
     Indication: ANAEMIA
     Dosage: 1000 MG, QMO
     Route: 065

REACTIONS (3)
  - Therapy non-responder [Unknown]
  - Osteonecrosis [Unknown]
  - Product use in unapproved indication [Unknown]
